FAERS Safety Report 16199275 (Version 1)
Quarter: 2019Q2

REPORT INFORMATION
  Report Type: Spontaneous
  Country: FR (occurrence: FR)
  Receive Date: 20190415
  Receipt Date: 20190415
  Transmission Date: 20190711
  Serious: Yes (Hospitalization, Other)
  Sender: FDA-Public Use
  Company Number: FR-MYLANLABS-2019M1034965

PATIENT
  Age: 53 Year
  Sex: Female
  Weight: 75 kg

DRUGS (3)
  1. NIFEDIPINE. [Suspect]
     Active Substance: NIFEDIPINE
     Indication: HYPERTENSION
     Dosage: 30 MILLIGRAM, QD
     Route: 048
     Dates: start: 2010
  2. MYOLASTAN [Suspect]
     Active Substance: TETRAZEPAM
     Indication: MYALGIA
     Dosage: UNK UNK,UNK
     Route: 048
     Dates: start: 20120923
  3. BIPROFENID [Suspect]
     Active Substance: KETOPROFEN
     Indication: MYALGIA
     Dosage: UNK UNK,UNK
     Route: 048
     Dates: start: 20120923

REACTIONS (1)
  - Pneumonia [Recovered/Resolved]

NARRATIVE: CASE EVENT DATE: 20120926
